FAERS Safety Report 23182181 (Version 1)
Quarter: 2023Q4

REPORT INFORMATION
  Report Type: Spontaneous
  Country: ES (occurrence: None)
  Receive Date: 20231114
  Receipt Date: 20231114
  Transmission Date: 20240110
  Serious: Yes (Hospitalization, Other)
  Sender: FDA-Public Use
  Company Number: 2023A254241

PATIENT
  Age: 77 Year
  Sex: Female

DRUGS (1)
  1. OSIMERTINIB [Suspect]
     Active Substance: OSIMERTINIB
     Indication: Lung adenocarcinoma
     Route: 048

REACTIONS (6)
  - Monoparesis [Unknown]
  - Post procedural complication [Unknown]
  - Metastases to bone [Unknown]
  - Pain [Recovering/Resolving]
  - Neuralgia [Unknown]
  - Gait disturbance [Unknown]
